FAERS Safety Report 20244651 (Version 1)
Quarter: 2021Q4

REPORT INFORMATION
  Report Type: Spontaneous
  Country: DE (occurrence: DE)
  Receive Date: 20211229
  Receipt Date: 20211229
  Transmission Date: 20220304
  Serious: Yes (Other)
  Sender: FDA-Public Use
  Company Number: None

PATIENT
  Age: 48 Year
  Sex: Female
  Weight: 66 kg

DRUGS (3)
  1. l-thyroxin 125 [Concomitant]
     Indication: Hypothyroidism
     Dosage: UNK QD
     Route: 048
  2. OZEMPIC [Suspect]
     Active Substance: SEMAGLUTIDE
     Indication: Type 2 diabetes mellitus
     Dosage: 0.5 DF
     Route: 058
     Dates: start: 20210108, end: 20210305
  3. METFORMIN [Concomitant]
     Active Substance: METFORMIN HYDROCHLORIDE
     Indication: Type 2 diabetes mellitus
     Dosage: 2 SEPARATED DOSES
     Route: 048
     Dates: start: 20201030

REACTIONS (7)
  - Neoplasm malignant [Unknown]
  - Ascites [Recovered/Resolved]
  - Syncope [Recovered/Resolved]
  - Lymphadenopathy [Recovered/Resolved]
  - Vomiting [Recovered/Resolved]
  - Diarrhoea [Recovered/Resolved]
  - Abdominal discomfort [Recovered/Resolved]

NARRATIVE: CASE EVENT DATE: 20210101
